FAERS Safety Report 14038348 (Version 1)
Quarter: 2017Q4

REPORT INFORMATION
  Report Type: Spontaneous
  Country: DE (occurrence: DE)
  Receive Date: 20171004
  Receipt Date: 20171004
  Transmission Date: 20180321
  Serious: Yes (Other)
  Sender: FDA-Public Use
  Company Number: GXKR2017DE004872

PATIENT
  Age: 86 Year
  Sex: Male

DRUGS (7)
  1. TILIDINE+NALOXONE [Suspect]
     Active Substance: NALOXONE HYDROCHLORIDE\TILIDINE HYDROCHLORIDE
     Indication: PAIN
     Dosage: 10 DRP, TID
     Route: 048
     Dates: start: 201106, end: 20121117
  2. METAMIZOLE [Suspect]
     Active Substance: METAMIZOLE
     Indication: PAIN
     Dosage: 500 MG, TID
     Route: 048
     Dates: start: 20111110, end: 20121117
  3. IBUPROFEN. [Suspect]
     Active Substance: IBUPROFEN
     Indication: PAIN
     Dosage: 600 MG, TID
     Route: 048
  4. METAMIZOLE [Suspect]
     Active Substance: METAMIZOLE
     Dosage: 500 MG, QD
     Route: 048
     Dates: start: 20121118
  5. IBUPROFEN. [Suspect]
     Active Substance: IBUPROFEN
     Dosage: 600 MG, BID
     Route: 048
     Dates: start: 20121118
  6. ESOMEPRAZOLE [Suspect]
     Active Substance: ESOMEPRAZOLE
     Indication: PRODUCT USED FOR UNKNOWN INDICATION
     Dosage: 40 MG, QD
     Route: 048
     Dates: start: 201201
  7. TILIDINE+NALOXONE [Suspect]
     Active Substance: NALOXONE HYDROCHLORIDE\TILIDINE HYDROCHLORIDE
     Dosage: 15 DRP, TID
     Route: 048
     Dates: start: 201202, end: 20121118

REACTIONS (10)
  - Vision blurred [Unknown]
  - Appendicitis perforated [Unknown]
  - Maculopathy [Unknown]
  - Arthropathy [Unknown]
  - Decreased appetite [Unknown]
  - Fatigue [Unknown]
  - Cataract [Unknown]
  - Apparent death [Unknown]
  - Balance disorder [Unknown]
  - Dizziness [Unknown]

NARRATIVE: CASE EVENT DATE: 20130218
